FAERS Safety Report 13825871 (Version 1)
Quarter: 2017Q3

REPORT INFORMATION
  Report Type: Spontaneous
  Country: US (occurrence: US)
  Receive Date: 20170802
  Receipt Date: 20170802
  Transmission Date: 20171127
  Serious: Yes (Other)
  Sender: FDA-Public Use
  Company Number: US-MYLANLABS-2017M1044819

PATIENT

DRUGS (1)
  1. ATENOLOL TABLETS, USP [Suspect]
     Active Substance: ATENOLOL
     Indication: HYPERTENSION
     Dosage: 100 MG, PM
     Route: 048

REACTIONS (2)
  - Drug effect decreased [Not Recovered/Not Resolved]
  - Dizziness [Recovered/Resolved]

NARRATIVE: CASE EVENT DATE: 20161119
